FAERS Safety Report 7441083-4 (Version None)
Quarter: 2011Q2

REPORT INFORMATION
  Report Type: 
  Country: None (occurrence: None)
  Receive Date: 20110427
  Receipt Date: 20110415
  Transmission Date: 20111010
  Serious: Yes (Hospitalization)
  Sender: FDA-Public Use
  Company Number: JP-GENENTECH-314395

PATIENT
  Sex: Female
  Weight: 70 kg

DRUGS (25)
  1. XOLAIR [Suspect]
     Indication: ASTHMA
     Dosage: 375 MG, Q2W
     Route: 058
     Dates: start: 20090616
  2. ETODOLAC [Concomitant]
     Indication: PRODUCT USED FOR UNKNOWN INDICATION
  3. ACTONEL [Concomitant]
     Indication: PRODUCT USED FOR UNKNOWN INDICATION
  4. XOLAIR [Suspect]
     Dosage: 375 MG, Q2W
     Route: 058
     Dates: start: 20090714
  5. XOLAIR [Suspect]
     Dosage: 375 MG, Q2W
     Route: 058
     Dates: start: 20090729
  6. XOLAIR [Suspect]
     Dosage: 375 MG, Q2W
     Route: 058
     Dates: start: 20090909
  7. MEPTIN [Concomitant]
     Indication: PRODUCT USED FOR UNKNOWN INDICATION
  8. LUPRAC [Concomitant]
     Indication: PRODUCT USED FOR UNKNOWN INDICATION
  9. XOLAIR [Suspect]
     Dosage: 375 MG, Q2W
     Route: 058
     Dates: start: 20090812
  10. XOLAIR [Suspect]
     Dosage: 375 MG, Q2W
     Route: 058
     Dates: start: 20090924
  11. SINGULAIR [Concomitant]
     Indication: PRODUCT USED FOR UNKNOWN INDICATION
  12. PAXIL [Concomitant]
     Indication: PRODUCT USED FOR UNKNOWN INDICATION
  13. ZADITEN [Concomitant]
     Indication: PRODUCT USED FOR UNKNOWN INDICATION
  14. THEO-DUR [Concomitant]
     Indication: PRODUCT USED FOR UNKNOWN INDICATION
  15. MERCAZOLE [Concomitant]
     Indication: PRODUCT USED FOR UNKNOWN INDICATION
  16. HIRNAMIN [Concomitant]
     Indication: PRODUCT USED FOR UNKNOWN INDICATION
  17. DEPAS [Concomitant]
     Indication: PRODUCT USED FOR UNKNOWN INDICATION
  18. MYSLEE [Concomitant]
     Indication: PRODUCT USED FOR UNKNOWN INDICATION
  19. ATARAX [Concomitant]
     Indication: PRODUCT USED FOR UNKNOWN INDICATION
  20. XOLAIR [Suspect]
     Dosage: 375 MG, Q2W
     Dates: start: 20090826
  21. SEREVENT [Concomitant]
     Indication: PRODUCT USED FOR UNKNOWN INDICATION
  22. MEILAX [Concomitant]
     Indication: PRODUCT USED FOR UNKNOWN INDICATION
  23. LENDORMIN [Concomitant]
     Indication: PRODUCT USED FOR UNKNOWN INDICATION
  24. ALVESCO [Concomitant]
     Indication: PRODUCT USED FOR UNKNOWN INDICATION
  25. PREDONINE [Concomitant]
     Indication: PRODUCT USED FOR UNKNOWN INDICATION

REACTIONS (1)
  - PERSONALITY DISORDER [None]
